FAERS Safety Report 9137539 (Version 2)
Quarter: 2013Q2

REPORT INFORMATION
  Report Type: Report from Study
  Country: BR (occurrence: BR)
  Receive Date: 20130304
  Receipt Date: 20130523
  Transmission Date: 20140414
  Serious: Yes (Death, Hospitalization, Other)
  Sender: FDA-Public Use
  Company Number: PHHY2013BR020609

PATIENT
  Age: 80 Year
  Sex: Male

DRUGS (4)
  1. FORASEQ [Suspect]
     Indication: DYSPNOEA
     Dosage: 2 DF, (2 CAPSULES OF EACH TREATMENT PER DAY)
     Dates: start: 1990
  2. FORASEQ [Suspect]
     Dosage: 1 DF, (1 CAPSULE PER DAY)
  3. ATROVENT [Concomitant]
     Dosage: 10 DROPS
  4. BEROTEC [Concomitant]
     Dosage: 3 DROPS

REACTIONS (15)
  - Acute respiratory failure [Fatal]
  - Pulmonary embolism [Fatal]
  - Fall [Recovered/Resolved]
  - Femur fracture [Recovered/Resolved]
  - Wound [Unknown]
  - Urinary tract infection [Unknown]
  - Gastrointestinal carcinoma [Recovered/Resolved]
  - Metastases to lymph nodes [Recovered/Resolved]
  - Retinal detachment [Not Recovered/Not Resolved]
  - Blindness [Not Recovered/Not Resolved]
  - Lung disorder [Unknown]
  - Aphagia [Not Recovered/Not Resolved]
  - Cataract [Recovered/Resolved]
  - Malaise [Unknown]
  - Speech disorder [Not Recovered/Not Resolved]
